FAERS Safety Report 14331813 (Version 1)
Quarter: 2017Q4

REPORT INFORMATION
  Report Type: Report from Study
  Country: US (occurrence: US)
  Receive Date: 20171228
  Receipt Date: 20171228
  Transmission Date: 20180321
  Serious: Yes (Hospitalization, Other)
  Sender: FDA-Public Use
  Company Number: US-ROCHE-2043629

PATIENT
  Sex: Female

DRUGS (3)
  1. CELLCEPT [Suspect]
     Active Substance: MYCOPHENOLATE MOFETIL\MYCOPHENOLATE MOFETIL HYDROCHLORIDE
     Indication: LUPUS NEPHRITIS
     Route: 048
  2. CELLCEPT [Suspect]
     Active Substance: MYCOPHENOLATE MOFETIL\MYCOPHENOLATE MOFETIL HYDROCHLORIDE
     Route: 048
     Dates: start: 201708
  3. PREDNISONE. [Concomitant]
     Active Substance: PREDNISONE
     Route: 048

REACTIONS (29)
  - Thrombosis prophylaxis [Unknown]
  - Cough [Unknown]
  - Micturition disorder [Unknown]
  - Nausea [Unknown]
  - Proteinuria [Unknown]
  - White blood cell count abnormal [Unknown]
  - Oral candidiasis [Unknown]
  - Haemoglobin abnormal [Unknown]
  - Flank pain [Unknown]
  - Pancytopenia [Unknown]
  - Intentional product use issue [Unknown]
  - Hypokalaemia [Recovered/Resolved]
  - Pyrexia [Recovering/Resolving]
  - Pyelonephritis [Unknown]
  - Diarrhoea [Unknown]
  - Hypertension [Unknown]
  - Sepsis [Unknown]
  - Ill-defined disorder [Unknown]
  - Pain [Recovering/Resolving]
  - Lip ulceration [Unknown]
  - Haematemesis [Unknown]
  - Off label use [Unknown]
  - Oral pain [Unknown]
  - Tachycardia [Unknown]
  - Decreased appetite [Unknown]
  - Hypocalcaemia [Unknown]
  - Asthenia [Unknown]
  - Platelet count abnormal [Unknown]
  - Haematocrit abnormal [Unknown]
